FAERS Safety Report 25374889 (Version 1)
Quarter: 2025Q2

REPORT INFORMATION
  Report Type: Spontaneous
  Country: CN (occurrence: CN)
  Receive Date: 20250529
  Receipt Date: 20250529
  Transmission Date: 20250716
  Serious: Yes (Other)
  Sender: BAYER HEALTHCARE PHARMACEUTICALS INC.
  Company Number: CN-BAYER-2025A070101

PATIENT
  Age: 93 Year
  Sex: Male

DRUGS (1)
  1. AVELOX [Suspect]
     Active Substance: MOXIFLOXACIN HYDROCHLORIDE
     Indication: Anti-infective therapy
     Dosage: 0.4 G, QD
     Route: 041
     Dates: start: 20250427, end: 20250506

REACTIONS (1)
  - Macule [Recovering/Resolving]

NARRATIVE: CASE EVENT DATE: 20250506
